FAERS Safety Report 5296169-X (Version None)
Quarter: 2007Q2

REPORT INFORMATION
  Report Type: 
  Country: None (occurrence: None)
  Receive Date: 20070413
  Receipt Date: 20070405
  Transmission Date: 20071010
  Serious: Yes (Hospitalization)
  Sender: FDA-Public Use
  Company Number: 2007SE01918

PATIENT
  Age: 74 Year
  Sex: Male

DRUGS (14)
  1. KENZEN [Suspect]
     Indication: CARDIOMYOPATHY
     Route: 048
     Dates: end: 20070303
  2. KENZEN [Interacting]
     Route: 048
     Dates: start: 20070301
  3. ALDACTONE [Interacting]
     Indication: CARDIOMYOPATHY
     Route: 048
     Dates: end: 20070303
  4. CARDENSIEL [Interacting]
     Indication: CARDIOMYOPATHY
     Route: 048
  5. LANTUS [Concomitant]
     Indication: DIABETES MELLITUS
     Route: 058
  6. PIROXICAM [Concomitant]
     Indication: DRUG USE FOR UNKNOWN INDICATION
     Route: 048
  7. LASIX [Concomitant]
     Indication: CARDIOMYOPATHY
     Route: 048
  8. LIPUR [Concomitant]
     Indication: HYPERCHOLESTEROLAEMIA
     Route: 048
  9. METFORMIN HCL [Concomitant]
     Indication: DIABETES MELLITUS
     Route: 048
  10. PREVISCAN [Concomitant]
     Indication: CARDIOMYOPATHY
     Route: 048
  11. AMIODARONE HCL [Concomitant]
     Indication: DRUG USE FOR UNKNOWN INDICATION
     Route: 048
  12. PARACETAMOL [Concomitant]
     Indication: DRUG USE FOR UNKNOWN INDICATION
     Route: 048
  13. DITROPAN [Concomitant]
     Indication: DRUG USE FOR UNKNOWN INDICATION
     Route: 048
  14. NOVORAPID [Concomitant]
     Indication: DIABETES MELLITUS
     Route: 065

REACTIONS (7)
  - ATRIOVENTRICULAR BLOCK FIRST DEGREE [None]
  - BUNDLE BRANCH BLOCK LEFT [None]
  - CONDITION AGGRAVATED [None]
  - DRUG INTERACTION [None]
  - HEART RATE DECREASED [None]
  - HYPERKALAEMIA [None]
  - RENAL FAILURE [None]
